FAERS Safety Report 8376456-9 (Version None)
Quarter: 2012Q2

REPORT INFORMATION
  Report Type: 
  Country: None (occurrence: None)
  Receive Date: 20120518
  Receipt Date: 20120508
  Transmission Date: 20120825
  Serious: Yes (Hospitalization)
  Sender: FDA-Public Use
  Company Number: MPS1-1000691

PATIENT
  Age: 5 Year
  Sex: Male

DRUGS (3)
  1. CORTICOSTEROID NOS (CORTICOSTEROID NOS) [Concomitant]
  2. ALDURAZYME [Suspect]
     Indication: MUCOPOLYSACCHARIDOSIS
     Dosage: INTRAVENOUS
     Route: 042
  3. BRONCHODILATORS NOS [Concomitant]

REACTIONS (3)
  - ASTHMA [None]
  - INCREASED BRONCHIAL SECRETION [None]
  - DYSPNOEA [None]
